FAERS Safety Report 6228024-2 (Version None)
Quarter: 2009Q2

REPORT INFORMATION
  Report Type: 
  Country: None (occurrence: None)
  Receive Date: 20090610
  Receipt Date: 20090610
  Transmission Date: 20091009
  Serious: No
  Sender: FDA-Public Use
  Company Number: None

PATIENT
  Age: 79 Year
  Sex: Male
  Weight: 81.82 kg

DRUGS (1)
  1. TERAZOSIN HCL [Suspect]
     Dosage: 2 MG EVERY DAY PO
     Route: 048
     Dates: start: 20080505, end: 20080707

REACTIONS (1)
  - SYNCOPE [None]
